FAERS Safety Report 10051029 (Version 3)
Quarter: 2014Q2

REPORT INFORMATION
  Report Type: Report from Study
  Country: DE (occurrence: DE)
  Receive Date: 20140401
  Receipt Date: 20140530
  Transmission Date: 20141212
  Serious: Yes (Life-Threatening, Hospitalization)
  Sender: FDA-Public Use
  Company Number: DE-BRISTOL-MYERS SQUIBB COMPANY-20584413

PATIENT
  Age: 33 Year
  Sex: Male
  Weight: 86.5 kg

DRUGS (15)
  1. NIVOLUMAB [Suspect]
     Indication: METASTATIC MALIGNANT MELANOMA
     Dosage: LAST DOSE:11OCT13
     Route: 042
     Dates: start: 20130920
  2. IPILIMUMAB [Suspect]
     Indication: METASTATIC MALIGNANT MELANOMA
     Dosage: LAST DOSE:11OCT13
     Route: 042
     Dates: start: 20130920
  3. BLINDED: PLACEBO [Suspect]
     Indication: METASTATIC MALIGNANT MELANOMA
     Dosage: LAST DOSE:11OCT13
     Route: 042
     Dates: start: 20130920
  4. IBUPROFEN [Concomitant]
     Dates: start: 20130808
  5. TRAMADOL [Concomitant]
     Dosage: TRAMADOL RETARD
     Dates: start: 20130827
  6. ZOMETA [Concomitant]
     Dates: start: 20130930
  7. HERBALIFE [Concomitant]
     Dates: start: 20131004
  8. NUTRITIONAL SUPPLEMENT [Concomitant]
     Dates: start: 20131004
  9. PHYTOESTROGEN [Concomitant]
     Indication: METASTASES TO BONE
     Dosage: PHYTO ESTROGEN INCLUDE ROTH KLEE SPROSSE 101
     Dates: start: 20131004
  10. PREDNISOLONE [Concomitant]
  11. PANTOZOL [Concomitant]
  12. FOLSAN [Concomitant]
  13. CITALOPRAM [Concomitant]
  14. CLINOLEIC [Concomitant]
  15. DENOSUMAB [Concomitant]

REACTIONS (1)
  - Pulmonary embolism [Recovered/Resolved]
